FAERS Safety Report 9609648 (Version 1)
Quarter: 2013Q4

REPORT INFORMATION
  Report Type: Spontaneous
  Country: US (occurrence: None)
  Receive Date: 20131008
  Receipt Date: 20131008
  Transmission Date: 20140711
  Serious: Yes (Hospitalization)
  Sender: FDA-Public Use
  Company Number: None

PATIENT
  Age: 53 Year
  Sex: Female

DRUGS (2)
  1. DAPTOMYCIN [Suspect]
     Indication: ENDOCARDITIS STAPHYLOCOCCAL
     Route: 042
     Dates: start: 20130823, end: 20131005
  2. CEFTAROLINE [Suspect]
     Indication: ENDOCARDITIS STAPHYLOCOCCAL
     Route: 042
     Dates: start: 20130823, end: 20131005

REACTIONS (5)
  - Eosinophilic pneumonia acute [None]
  - Respiratory failure [None]
  - Wound infection bacterial [None]
  - Klebsiella infection [None]
  - Escherichia infection [None]
